FAERS Safety Report 20125311 (Version 3)
Quarter: 2021Q4

REPORT INFORMATION
  Report Type: Spontaneous
  Country: IT (occurrence: IT)
  Receive Date: 20211129
  Receipt Date: 20211214
  Transmission Date: 20220303
  Serious: Yes (Life-Threatening, Other)
  Sender: FDA-Public Use
  Company Number: IT-CELGENE-ITA-20211105729

PATIENT
  Age: 36 Year
  Sex: Female

DRUGS (26)
  1. ABRAXANE [Suspect]
     Active Substance: PACLITAXEL
     Indication: Hormone receptor positive breast cancer
     Dosage: 260 MILLIGRAM/SQ. METER
     Route: 041
  2. ABRAXANE [Suspect]
     Active Substance: PACLITAXEL
     Indication: HER2 positive breast cancer
  3. CYCLOPHOSPHAMIDE [Suspect]
     Active Substance: CYCLOPHOSPHAMIDE
     Indication: Hormone receptor positive breast cancer
     Route: 065
     Dates: start: 201201, end: 201204
  4. CYCLOPHOSPHAMIDE [Suspect]
     Active Substance: CYCLOPHOSPHAMIDE
     Indication: HER2 positive breast cancer
  5. TRASTUZUMAB [Suspect]
     Active Substance: TRASTUZUMAB
     Indication: HER2 positive breast cancer
     Route: 065
     Dates: start: 201210, end: 201304
  6. TRASTUZUMAB [Suspect]
     Active Substance: TRASTUZUMAB
     Indication: Hormone receptor positive breast cancer
     Route: 065
     Dates: start: 201201, end: 201204
  7. TRASTUZUMAB [Suspect]
     Active Substance: TRASTUZUMAB
     Dosage: 3.6 MILLIGRAM/KILOGRAM
     Route: 065
     Dates: start: 201608
  8. NAVELBINE [Suspect]
     Active Substance: VINORELBINE TARTRATE
     Indication: HER2 positive breast cancer
     Route: 065
  9. NAVELBINE [Suspect]
     Active Substance: VINORELBINE TARTRATE
     Indication: Hormone receptor positive breast cancer
  10. DENOSUMAB [Suspect]
     Active Substance: DENOSUMAB
     Indication: Hormone receptor positive breast cancer
     Route: 065
     Dates: start: 201608, end: 201804
  11. DENOSUMAB [Suspect]
     Active Substance: DENOSUMAB
     Indication: HER2 positive breast cancer
  12. GEMCITABINE [Suspect]
     Active Substance: GEMCITABINE
     Indication: Hormone receptor positive breast cancer
     Dosage: 1000 MILLIGRAM/SQ. METER
     Route: 065
  13. GEMCITABINE [Suspect]
     Active Substance: GEMCITABINE
     Indication: HER2 positive breast cancer
  14. LAPATINIB [Suspect]
     Active Substance: LAPATINIB
     Indication: Hormone receptor positive breast cancer
     Dosage: 1250 MILLIGRAM
     Route: 065
  15. CAPECITABINE [Suspect]
     Active Substance: CAPECITABINE
     Indication: Hormone receptor positive breast cancer
     Dosage: 1000 MILLIGRAM/KILOGRAM
     Route: 048
     Dates: start: 201810
  16. PERTUZUMAB [Suspect]
     Active Substance: PERTUZUMAB
     Indication: Hormone receptor positive breast cancer
     Route: 065
  17. PERTUZUMAB [Suspect]
     Active Substance: PERTUZUMAB
     Indication: HER2 positive breast cancer
  18. DOXORUBICIN [Suspect]
     Active Substance: DOXORUBICIN
     Indication: Hormone receptor positive breast cancer
     Route: 065
     Dates: start: 201201, end: 201204
  19. DOXORUBICIN [Suspect]
     Active Substance: DOXORUBICIN
     Indication: HER2 positive breast cancer
     Route: 065
     Dates: start: 201210, end: 201304
  20. DOCETAXEL [Suspect]
     Active Substance: DOCETAXEL
     Indication: Hormone receptor positive breast cancer
     Route: 065
     Dates: start: 201201, end: 201204
  21. DOCETAXEL [Suspect]
     Active Substance: DOCETAXEL
     Indication: HER2 positive breast cancer
  22. VINORELBINE TARTRATE [Suspect]
     Active Substance: VINORELBINE TARTRATE
     Indication: Hormone receptor positive breast cancer
     Route: 065
  23. VINORELBINE TARTRATE [Suspect]
     Active Substance: VINORELBINE TARTRATE
     Indication: HER2 positive breast cancer
  24. GONADORELIN DIACETATE TETRAHYDRATE [Concomitant]
     Active Substance: GONADORELIN DIACETATE TETRAHYDRATE
     Indication: Hormone therapy
     Route: 065
     Dates: start: 201209
  25. TAMOXIFEN [Concomitant]
     Active Substance: TAMOXIFEN
     Indication: Hormone therapy
     Route: 065
     Dates: start: 201209
  26. GONADORELIN DIACETATE TETRAHYDRATE [Concomitant]
     Active Substance: GONADORELIN DIACETATE TETRAHYDRATE
     Indication: Product used for unknown indication
     Route: 065

REACTIONS (10)
  - Hepatotoxicity [Unknown]
  - Hypertransaminasaemia [Recovered/Resolved]
  - Metastases to lung [Unknown]
  - Metastases to bone [Unknown]
  - Metastases to lymph nodes [Unknown]
  - Neutropenia [Recovered/Resolved]
  - Anaemia [Recovered/Resolved]
  - Thrombocytopenia [Recovered/Resolved]
  - Pain in extremity [Recovered/Resolved]
  - Mucosal inflammation [Recovered/Resolved]

NARRATIVE: CASE EVENT DATE: 20181001
